FAERS Safety Report 4759241-6 (Version None)
Quarter: 2005Q3

REPORT INFORMATION
  Report Type: 
  Country: None (occurrence: None)
  Receive Date: 20050831
  Receipt Date: 20050817
  Transmission Date: 20060218
  Serious: Yes (Hospitalization)
  Sender: FDA-Public Use
  Company Number: BCM-000927

PATIENT
  Age: 76 Year
  Sex: Female

DRUGS (10)
  1. IOPAMIDOL-300 [Suspect]
     Indication: ANGIOGRAM
     Dosage: 250 ML IA
     Dates: start: 20050812, end: 20050812
  2. IOPAMIDOL-300 [Suspect]
     Indication: EXOPHTHALMOS
     Dosage: 250 ML IA
     Dates: start: 20050812, end: 20050812
  3. IOPAMIDOL-300 [Suspect]
     Indication: FISTULA
     Dosage: 250 ML IA
     Dates: start: 20050812, end: 20050812
  4. GARDENALE, (PHENOBARBITAL SODIUM) [Concomitant]
  5. FORZAAR [Concomitant]
  6. SEQUACOR [Concomitant]
  7. CARDIOASPIRIN, (ACETYLSALICYLIC ACID) [Concomitant]
  8. ANTRA /00661201/, (OMEPRAZOLE) [Concomitant]
  9. TORADOL [Concomitant]
  10. LEXOTAN, (BROMAZEPAM) [Concomitant]

REACTIONS (6)
  - AGITATION [None]
  - BLINDNESS CORTICAL [None]
  - CONFUSIONAL STATE [None]
  - HEMIPARESIS [None]
  - PROCEDURAL COMPLICATION [None]
  - PSYCHOMOTOR RETARDATION [None]
